FAERS Safety Report 10257484 (Version 1)
Quarter: 2014Q2

REPORT INFORMATION
  Report Type: Spontaneous
  Country: US (occurrence: US)
  Receive Date: 20140625
  Receipt Date: 20140625
  Transmission Date: 20141212
  Serious: Yes (Other)
  Sender: FDA-Public Use
  Company Number: US-JNJFOC-20140612932

PATIENT
  Sex: Male

DRUGS (3)
  1. NUCYNTA [Suspect]
     Indication: PAIN
     Route: 048
  2. NUCYNTA [Suspect]
     Indication: PAIN
     Route: 048
     Dates: start: 201306
  3. GABAPENTIN [Concomitant]
     Route: 065

REACTIONS (2)
  - Surgery [Unknown]
  - Adverse event [Not Recovered/Not Resolved]
